FAERS Safety Report 22897381 (Version 4)
Quarter: 2024Q2

REPORT INFORMATION
  Report Type: Report from Study
  Country: US (occurrence: US)
  Receive Date: 20230902
  Receipt Date: 20240515
  Transmission Date: 20240716
  Serious: Yes (Other)
  Sender: FDA-Public Use
  Company Number: US-002147023-NVSC2023US187916

PATIENT
  Age: 15 Year
  Sex: Male

DRUGS (1)
  1. ILARIS [Suspect]
     Active Substance: CANAKINUMAB
     Indication: Juvenile idiopathic arthritis
     Dosage: 300 MG, OTHER (EVERY 4 WEEKS)
     Route: 058
     Dates: start: 20220915

REACTIONS (4)
  - Juvenile idiopathic arthritis [Recovered/Resolved]
  - Autism spectrum disorder [Unknown]
  - Rheumatoid arthritis [Unknown]
  - Condition aggravated [Recovered/Resolved]

NARRATIVE: CASE EVENT DATE: 20230101
